FAERS Safety Report 18622361 (Version 1)
Quarter: 2020Q4

REPORT INFORMATION
  Report Type: Spontaneous
  Country: US (occurrence: US)
  Receive Date: 20201215
  Receipt Date: 20201215
  Transmission Date: 20210114
  Serious: No
  Sender: FDA-Public Use
  Company Number: None

PATIENT
  Age: 66 Year
  Sex: Male
  Weight: 114.31 kg

DRUGS (1)
  1. PERFLUTREN LIPID MICROSPHERE [Suspect]
     Active Substance: PERFLUTREN
     Indication: DIABETES MELLITUS
     Dosage: ?          OTHER FREQUENCY:1;OTHER ROUTE:22G IV?
     Dates: start: 20200611

REACTIONS (2)
  - Adverse event [None]
  - Device information output issue [None]

NARRATIVE: CASE EVENT DATE: 20200611
